FAERS Safety Report 25083728 (Version 4)
Quarter: 2025Q2

REPORT INFORMATION
  Report Type: Spontaneous
  Country: US (occurrence: US)
  Receive Date: 20250317
  Receipt Date: 20250404
  Transmission Date: 20250717
  Serious: Yes (Other)
  Sender: BIOVITRUM
  Company Number: US-BIOVITRUM-2024-US-013349

PATIENT
  Age: 26 Year
  Sex: Female

DRUGS (3)
  1. KINERET [Suspect]
     Active Substance: ANAKINRA
     Indication: Osteoarthritis
     Route: 058
     Dates: end: 202502
  2. KINERET [Suspect]
     Active Substance: ANAKINRA
     Indication: Connective tissue disorder
     Route: 058
     Dates: end: 20250226
  3. KINERET [Suspect]
     Active Substance: ANAKINRA
     Indication: Multifocal fibrosclerosis

REACTIONS (12)
  - Injection site pain [Unknown]
  - Off label use [Recovered/Resolved]
  - COVID-19 [Unknown]
  - Product dose omission issue [Unknown]
  - Abdominal discomfort [Unknown]
  - Arthritis [Unknown]
  - Upper respiratory tract infection [Unknown]
  - Paraesthesia oral [Unknown]
  - Intentional product misuse [Recovered/Resolved]
  - Lower respiratory tract infection [Unknown]
  - Injection site urticaria [Unknown]
  - Injection site rash [Unknown]

NARRATIVE: CASE EVENT DATE: 20241001
